FAERS Safety Report 17296329 (Version 2)
Quarter: 2020Q1

REPORT INFORMATION
  Report Type: Spontaneous
  Country: US (occurrence: US)
  Receive Date: 20200122
  Receipt Date: 20200130
  Transmission Date: 20200409
  Serious: Yes (Hospitalization)
  Sender: FDA-Public Use
  Company Number: US-SA-2020SA016361

PATIENT
  Age: 61 Year
  Sex: Male
  Weight: 117.93 kg

DRUGS (26)
  1. METOPROLOL. [Concomitant]
     Active Substance: METOPROLOL
     Dosage: UNK
     Route: 065
  2. XARELTO [Concomitant]
     Active Substance: RIVAROXABAN
     Dosage: 20 MG, QD
     Route: 065
  3. ALBUTEROL [SALBUTAMOL] [Concomitant]
     Active Substance: ALBUTEROL
     Dosage: UNK UNK, PRN
     Route: 065
  4. AMBIEN [Concomitant]
     Active Substance: ZOLPIDEM TARTRATE
     Dosage: UNK
     Route: 065
  5. PLAVIX [Suspect]
     Active Substance: CLOPIDOGREL BISULFATE
     Dosage: 300 MG
     Route: 048
  6. ROSUVASTATIN. [Concomitant]
     Active Substance: ROSUVASTATIN
     Dosage: 20 MG, BID
     Route: 065
  7. IMDUR [Concomitant]
     Active Substance: ISOSORBIDE MONONITRATE
     Dosage: 30 MG, QD
     Route: 065
  8. LOTREL [LOTEPREDNOL ETABONATE] [Concomitant]
     Active Substance: LOTEPREDNOL ETABONATE
     Dosage: 5-20 MG
     Route: 065
  9. NITRO [GLYCERYL TRINITRATE] [Concomitant]
     Active Substance: NITROGLYCERIN
     Indication: CHEST PAIN
     Dosage: 1 DF, PRN
     Route: 060
  10. PRASUGREL HYDROCHLORIDE [Suspect]
     Active Substance: PRASUGREL HYDROCHLORIDE
     Dosage: UNK
     Route: 065
  11. LOVASTATIN. [Concomitant]
     Active Substance: LOVASTATIN
     Dosage: 40 UNK
  12. SYNTHROID [Concomitant]
     Active Substance: LEVOTHYROXINE SODIUM
     Dosage: 150 UG
     Route: 065
  13. RANEXA [Concomitant]
     Active Substance: RANOLAZINE
     Dosage: 1 DF, BID, 1000MG
     Route: 065
  14. ASPIRIN [ACETYLSALICYLIC ACID] [Concomitant]
     Active Substance: ASPIRIN
     Dosage: 81 MG, QD
     Route: 065
  15. LOVASTATIN. [Concomitant]
     Active Substance: LOVASTATIN
     Dosage: 20 MG
  16. OMEGA 3 [FISH OIL] [Concomitant]
     Active Substance: FISH OIL
     Dosage: 2 DF, QD
     Route: 065
  17. PLAVIX [Suspect]
     Active Substance: CLOPIDOGREL BISULFATE
     Dosage: UNK
     Route: 065
     Dates: start: 2019, end: 201908
  18. PLAVIX [Suspect]
     Active Substance: CLOPIDOGREL BISULFATE
     Dosage: 600 MG
     Route: 042
  19. HYDROCHLOROTHIAZIDE. [Concomitant]
     Active Substance: HYDROCHLOROTHIAZIDE
  20. TRELEGY ELLIPTA [Concomitant]
     Active Substance: FLUTICASONE FUROATE\UMECLIDINIUM BROMIDE\VILANTEROL TRIFENATATE
     Dosage: INHALER DAILY
     Route: 065
  21. EFFIENT [Concomitant]
     Active Substance: PRASUGREL HYDROCHLORIDE
     Dosage: 10 MG, QD
     Route: 065
  22. PLAVIX [Suspect]
     Active Substance: CLOPIDOGREL BISULFATE
     Indication: STENT PLACEMENT
     Dosage: 300 MG
     Route: 042
  23. TESTOSTERONE. [Concomitant]
     Active Substance: TESTOSTERONE
     Dosage: UNK
     Route: 065
  24. ARGININE [Concomitant]
     Active Substance: ARGININE
     Dosage: 2 DF, QD
     Route: 065
  25. LASIX [Concomitant]
     Active Substance: FUROSEMIDE
     Dosage: 20 MG, PRN
     Route: 065
  26. PLAVIX [Suspect]
     Active Substance: CLOPIDOGREL BISULFATE
     Indication: STENT PLACEMENT
     Dosage: 75 MG, QD
     Route: 048
     Dates: start: 201903

REACTIONS (12)
  - Vascular stent occlusion [Unknown]
  - Cardiac disorder [Unknown]
  - Pulmonary fibrosis [Unknown]
  - Chronic obstructive pulmonary disease [Unknown]
  - Respiratory distress [Unknown]
  - Dyspnoea [Not Recovered/Not Resolved]
  - Aphasia [Unknown]
  - Dyspnoea exertional [Unknown]
  - Chest pain [Not Recovered/Not Resolved]
  - Coronary artery disease [Unknown]
  - Pulmonary pain [Unknown]
  - Intentional product use issue [Unknown]

NARRATIVE: CASE EVENT DATE: 201904
